FAERS Safety Report 25076591 (Version 1)
Quarter: 2025Q1

REPORT INFORMATION
  Report Type: Spontaneous
  Country: CN (occurrence: CN)
  Receive Date: 20250313
  Receipt Date: 20250313
  Transmission Date: 20250409
  Serious: Yes (Other)
  Sender: GLAXOSMITHKLINE
  Company Number: CN-GLAXOSMITHKLINE INC-CN2025APC028765

PATIENT

DRUGS (2)
  1. BELIMUMAB [Suspect]
     Active Substance: BELIMUMAB
     Indication: Systemic lupus erythematosus
     Dosage: 480 MG, QD
     Route: 042
     Dates: start: 20250124, end: 20250124
  2. BELIMUMAB [Suspect]
     Active Substance: BELIMUMAB
     Indication: Lupus nephritis

REACTIONS (5)
  - Nausea [Recovered/Resolved]
  - Rash pruritic [Recovered/Resolved]
  - Vomiting [Recovered/Resolved]
  - Hypersensitivity [Recovered/Resolved]
  - Cough [Recovered/Resolved]

NARRATIVE: CASE EVENT DATE: 20250124
